FAERS Safety Report 24826014 (Version 1)
Quarter: 2025Q1

REPORT INFORMATION
  Report Type: Report from Study
  Country: CA (occurrence: CA)
  Receive Date: 20250109
  Receipt Date: 20250109
  Transmission Date: 20250409
  Serious: Yes (Hospitalization)
  Sender: CSL BEHRING
  Company Number: CA-Vifor (International) Inc.-VIT-2024-03608

PATIENT
  Age: 84 Year
  Sex: Male

DRUGS (2)
  1. VELTASSA [Suspect]
     Active Substance: PATIROMER
     Indication: Hyperkalaemia
     Dosage: 8.4,G,TIW
     Route: 048
     Dates: start: 20230303
  2. VELTASSA [Suspect]
     Active Substance: PATIROMER
     Indication: Off label use
     Dosage: 8.4 G, BIW
     Route: 048

REACTIONS (2)
  - Illness [Unknown]
  - Off label use [Unknown]

NARRATIVE: CASE EVENT DATE: 20230303
